FAERS Safety Report 5854677-4 (Version None)
Quarter: 2008Q3

REPORT INFORMATION
  Report Type: 
  Country: None (occurrence: None)
  Receive Date: 20080822
  Receipt Date: 20071204
  Transmission Date: 20090109
  Serious: No
  Sender: FDA-Public Use
  Company Number: US-ABBOTT-07P-163-0427501-00

PATIENT
  Sex: Female
  Weight: 61.29 kg

DRUGS (5)
  1. SYNTHROID [Suspect]
     Indication: DRUG USE FOR UNKNOWN INDICATION
     Route: 048
     Dates: start: 20030801
  2. SYNTHROID [Suspect]
     Dosage: 188MCQ
     Route: 048
     Dates: end: 20071112
  3. SYNTHROID [Suspect]
     Route: 048
     Dates: start: 20071116, end: 20071116
  4. SYNTHROID [Suspect]
     Route: 048
     Dates: start: 20071117
  5. VITAMIN TAB [Concomitant]
     Indication: DRUG USE FOR UNKNOWN INDICATION
     Route: 048

REACTIONS (9)
  - ASTHENIA [None]
  - BLINDNESS [None]
  - EYE SWELLING [None]
  - FALL [None]
  - HYPOTHYROIDISM [None]
  - LOSS OF CONSCIOUSNESS [None]
  - SUPPRESSED LACTATION [None]
  - TONGUE DISORDER [None]
  - TREMOR [None]
